FAERS Safety Report 9479304 (Version 1)
Quarter: 2013Q3

REPORT INFORMATION
  Report Type: Spontaneous
  Country: US (occurrence: US)
  Receive Date: 20130827
  Receipt Date: 20130827
  Transmission Date: 20140515
  Serious: No
  Sender: FDA-Public Use
  Company Number: US-009507513-1308USA010708

PATIENT
  Age: 63 Year
  Sex: Male

DRUGS (3)
  1. JANUVIA [Suspect]
     Indication: DIABETES MELLITUS
     Dosage: SPLIT HIS 100MG TABLETS IN HALF AND TAKE ONE HALF OF THAT 100MG TABLET DAILY
     Route: 048
     Dates: start: 201008
  2. LEVEMIR [Concomitant]
  3. GLIMEPIRIDE [Concomitant]
     Dosage: UNK

REACTIONS (2)
  - Blood glucose increased [Not Recovered/Not Resolved]
  - Wrong technique in drug usage process [Unknown]
